FAERS Safety Report 7938372-3 (Version None)
Quarter: 2011Q4

REPORT INFORMATION
  Report Type: 
  Country: None (occurrence: None)
  Receive Date: 20111123
  Receipt Date: 20111114
  Transmission Date: 20120403
  Serious: Yes (Hospitalization, Other)
  Sender: FDA-Public Use
  Company Number: CA-ASTRAZENECA-2011SE68833

PATIENT
  Age: 23 Year
  Sex: Female
  Weight: 141 kg

DRUGS (6)
  1. PERCOCET [Concomitant]
  2. ENOXAPARIN [Concomitant]
     Route: 058
  3. DYMENHYDRINATE [Concomitant]
     Route: 042
  4. NEXIUM [Suspect]
     Route: 048
  5. NEXIUM [Suspect]
     Route: 048
  6. MORPHINE [Concomitant]
     Route: 042

REACTIONS (2)
  - PRURITUS [None]
  - LIP SWELLING [None]
